FAERS Safety Report 5726903-3 (Version None)
Quarter: 2008Q2

REPORT INFORMATION
  Report Type: 
  Country: None (occurrence: None)
  Receive Date: 20080502
  Receipt Date: 20080421
  Transmission Date: 20081010
  Serious: Yes (Other)
  Sender: FDA-Public Use
  Company Number: HU-PFIZER INC-2008036529

PATIENT

DRUGS (1)
  1. ALPROSTADIL SOLUTION, STERILE [Suspect]
     Indication: PATENT DUCTUS ARTERIOSUS

REACTIONS (4)
  - ABDOMINAL DISTENSION [None]
  - FEEDING DISORDER OF INFANCY OR EARLY CHILDHOOD [None]
  - OBSTRUCTION GASTRIC [None]
  - WHITE BLOOD CELL COUNT INCREASED [None]
